FAERS Safety Report 6698000-4 (Version None)
Quarter: 2010Q2

REPORT INFORMATION
  Report Type: 
  Country: None (occurrence: None)
  Receive Date: 20100427
  Receipt Date: 20100419
  Transmission Date: 20101027
  Serious: Yes (Other)
  Sender: FDA-Public Use
  Company Number: US-JNJFOC-20100404830

PATIENT
  Sex: Female
  Weight: 58.97 kg

DRUGS (9)
  1. FENTANYL CITRATE [Suspect]
     Indication: PAIN IN EXTREMITY
     Route: 062
  2. FENTANYL CITRATE [Suspect]
     Indication: PAIN
     Route: 062
  3. FENTANYL CITRATE [Suspect]
     Route: 062
  4. FENTANYL CITRATE [Suspect]
     Route: 062
  5. ZANAFLEX [Concomitant]
     Indication: MUSCLE DISORDER
     Route: 048
  6. ATENOLOL [Concomitant]
     Indication: HYPERTENSION
     Route: 048
  7. TRICOR [Concomitant]
     Indication: BLOOD CHOLESTEROL INCREASED
     Route: 048
  8. LYRICA [Concomitant]
     Indication: PAIN
     Route: 048
  9. MIRTAZAPINE [Concomitant]
     Indication: SLEEP DISORDER
     Route: 048

REACTIONS (6)
  - ALOPECIA [None]
  - ANXIETY [None]
  - DIARRHOEA [None]
  - GASTRIC DISORDER [None]
  - INADEQUATE ANALGESIA [None]
  - RHEUMATOID ARTHRITIS [None]
